FAERS Safety Report 7705693-9 (Version None)
Quarter: 2011Q3

REPORT INFORMATION
  Report Type: 
  Country: None (occurrence: None)
  Receive Date: 20110824
  Receipt Date: 20110819
  Transmission Date: 20111222
  Serious: Yes (Life-Threatening, Hospitalization)
  Sender: FDA-Public Use
  Company Number: DE-SANOFI-AVENTIS-2011SA051334

PATIENT
  Age: 71 Year
  Sex: Male
  Weight: 95 kg

DRUGS (9)
  1. JEVTANA KIT [Suspect]
     Indication: PROSTATE CANCER METASTATIC
     Route: 051
     Dates: start: 20110429, end: 20110429
  2. POLYETHYLENE GLYCOL [Concomitant]
     Route: 065
  3. JEVTANA KIT [Suspect]
     Route: 051
     Dates: start: 20110712, end: 20110712
  4. HYDROMORPHONE HCL [Concomitant]
     Route: 048
  5. LYRICA [Concomitant]
     Route: 048
  6. DEXAMETHASONE [Concomitant]
     Route: 048
  7. TORSEMIDE [Concomitant]
     Route: 048
  8. ZOLPIDEM [Concomitant]
     Route: 065
  9. VERAPAMIL [Concomitant]
     Route: 048

REACTIONS (2)
  - FEBRILE NEUTROPENIA [None]
  - DIVERTICULAR PERFORATION [None]
